FAERS Safety Report 6521555-7 (Version None)
Quarter: 2009Q4

REPORT INFORMATION
  Report Type: 
  Country: None (occurrence: None)
  Receive Date: 20091224
  Receipt Date: 20091222
  Transmission Date: 20100525
  Serious: Yes (Hospitalization, Other)
  Sender: FDA-Public Use
  Company Number: A-US2007-18038

PATIENT
  Age: 33 Year
  Sex: Female

DRUGS (2)
  1. TRACLEER [Suspect]
     Indication: PULMONARY ARTERIAL HYPERTENSION
     Dosage: 62.5 MG, BID, ORAL
     Route: 048
     Dates: start: 20070730
  2. REMODULIN (TREPROSTINIL) [Concomitant]

REACTIONS (10)
  - ABORTION INDUCED [None]
  - DEVICE RELATED INFECTION [None]
  - DISEASE PROGRESSION [None]
  - DRUG EXPOSURE DURING PREGNANCY [None]
  - DYSPNOEA [None]
  - INFLUENZA [None]
  - PREGNANCY [None]
  - PULMONARY ARTERIAL HYPERTENSION [None]
  - PYREXIA [None]
  - SYNCOPE [None]
